FAERS Safety Report 6547387-1 (Version None)
Quarter: 2010Q1

REPORT INFORMATION
  Report Type: 
  Country: None (occurrence: None)
  Receive Date: 20100122
  Receipt Date: 20100112
  Transmission Date: 20100710
  Serious: Yes (Hospitalization)
  Sender: FDA-Public Use
  Company Number: PHHY2010DE01972

PATIENT
  Age: 51 Year
  Sex: Female

DRUGS (2)
  1. ESTRAGEST TTS [Suspect]
     Indication: HORMONE REPLACEMENT THERAPY
     Dosage: UNK
     Route: 062
     Dates: start: 20080801, end: 20090601
  2. AMLODIPINE [Concomitant]
     Indication: HYPERTENSION

REACTIONS (4)
  - FATIGUE [None]
  - HYPERCHOLESTEROLAEMIA [None]
  - MEMORY IMPAIRMENT [None]
  - THALAMIC INFARCTION [None]
